FAERS Safety Report 21520070 (Version 1)
Quarter: 2022Q4

REPORT INFORMATION
  Report Type: Spontaneous
  Country: DE (occurrence: US)
  Receive Date: 20221028
  Receipt Date: 20221028
  Transmission Date: 20230113
  Serious: No
  Sender: FDA-Public Use
  Company Number: DE-PFIZER INC-202201207362

PATIENT
  Age: 53 Year
  Sex: Female
  Weight: 90 kg

DRUGS (4)
  1. PAXLOVID [Suspect]
     Active Substance: NIRMATRELVIR\RITONAVIR
     Indication: COVID-19 treatment
     Dosage: 300MG/100MG, 2X DAILY
     Dates: start: 20220925, end: 20220930
  2. PROGESTERONE [Concomitant]
     Active Substance: PROGESTERONE
     Dates: start: 202101
  3. ESTRADIOL [Concomitant]
     Active Substance: ESTRADIOL
     Dates: start: 202101
  4. MELOXICAM [Concomitant]
     Active Substance: MELOXICAM
     Dates: start: 202001

REACTIONS (2)
  - COVID-19 [Not Recovered/Not Resolved]
  - Disease recurrence [Not Recovered/Not Resolved]

NARRATIVE: CASE EVENT DATE: 20221003
